FAERS Safety Report 6724853-7 (Version None)
Quarter: 2010Q2

REPORT INFORMATION
  Report Type: 
  Country: None (occurrence: None)
  Receive Date: 20100513
  Receipt Date: 20100513
  Transmission Date: 20101027
  Serious: No
  Sender: FDA-Public Use
  Company Number: None

PATIENT
  Sex: Female
  Weight: 103.8737 kg

DRUGS (1)
  1. ALLI [Suspect]
     Indication: OBESITY
     Dosage: 1 ONE ONLY PO
     Route: 048
     Dates: start: 20100228, end: 20100228

REACTIONS (2)
  - ABDOMINAL PAIN LOWER [None]
  - STEATORRHOEA [None]
